FAERS Safety Report 26217118 (Version 1)
Quarter: 2025Q4

REPORT INFORMATION
  Report Type: Spontaneous
  Country: CN (occurrence: CN)
  Receive Date: 20251231
  Receipt Date: 20251231
  Transmission Date: 20260118
  Serious: Yes (Hospitalization, Other)
  Sender: BAXTER
  Company Number: None

PATIENT
  Age: 40 Year
  Sex: Female
  Weight: 63 kg

DRUGS (6)
  1. CYCLOPHOSPHAMIDE [Suspect]
     Active Substance: CYCLOPHOSPHAMIDE
     Indication: Breast cancer female
     Dosage: 0.9 G, QD
     Route: 041
     Dates: start: 20251128, end: 20251128
  2. SODIUM CHLORIDE [Suspect]
     Active Substance: SODIUM CHLORIDE
     Dosage: 100 ML, QD WITH CYCLOPHOSPHAMIDE
     Route: 041
     Dates: start: 20251128, end: 20251128
  3. SODIUM CHLORIDE [Suspect]
     Active Substance: SODIUM CHLORIDE
     Dosage: 100 ML, QD WITH EPIRUBICIN
     Route: 041
     Dates: start: 20251128, end: 20251128
  4. SODIUM CHLORIDE [Suspect]
     Active Substance: SODIUM CHLORIDE
     Dosage: 80 ML, QD WITH PACLITAXEL
     Route: 041
     Dates: start: 20251129, end: 20251129
  5. EPIRUBICIN HYDROCHLORIDE [Suspect]
     Active Substance: EPIRUBICIN HYDROCHLORIDE
     Indication: Breast cancer female
     Dosage: 140 MG, QD
     Route: 041
     Dates: start: 20251128, end: 20251128
  6. PACLITAXEL [Suspect]
     Active Substance: PACLITAXEL
     Indication: Breast cancer female
     Dosage: 400 MG, QD
     Route: 041
     Dates: start: 20251129, end: 20251129

REACTIONS (2)
  - Drug-induced liver injury [Recovering/Resolving]
  - Hepatic function abnormal [Recovering/Resolving]

NARRATIVE: CASE EVENT DATE: 20251217
